FAERS Safety Report 4630769-2 (Version None)
Quarter: 2005Q2

REPORT INFORMATION
  Report Type: 
  Country: None (occurrence: None)
  Receive Date: 20050408
  Receipt Date: 20050329
  Transmission Date: 20051028
  Serious: Yes (Other)
  Sender: FDA-Public Use
  Company Number: GB-ROCHE-400249

PATIENT
  Age: 16 Year
  Sex: Male

DRUGS (2)
  1. ROACCUTANE [Suspect]
     Indication: ACNE
     Route: 065
     Dates: start: 20040715, end: 20040826
  2. ROACCUTANE [Suspect]
     Route: 065
     Dates: start: 20040826, end: 20040927

REACTIONS (5)
  - ANOREXIA [None]
  - ASTHENIA [None]
  - COLITIS ULCERATIVE [None]
  - JOINT STIFFNESS [None]
  - MOUTH ULCERATION [None]
